FAERS Safety Report 14995734 (Version 4)
Quarter: 2018Q3

REPORT INFORMATION
  Report Type: Report from Study
  Country: None (occurrence: ES)
  Receive Date: 20180611
  Receipt Date: 20180703
  Transmission Date: 20181010
  Serious: Yes (Death, Hospitalization, Other)
  Sender: FDA-Public Use
  Company Number: ES-ABBVIE-18K-144-2382511-00

PATIENT
  Age: 82 Year
  Sex: Female
  Weight: 35 kg

DRUGS (2)
  1. DUODOPA [Suspect]
     Active Substance: CARBIDOPA\LEVODOPA
     Indication: PARKINSON^S DISEASE
     Dosage: MD: 6 ML, CD: 2.1 ML/H
     Route: 050
     Dates: start: 20111212
  2. DUODOPA [Suspect]
     Active Substance: CARBIDOPA\LEVODOPA
     Dosage: MD: 9 ML, CD: 2.4 ML/H
     Route: 050
     Dates: start: 201806

REACTIONS (7)
  - On and off phenomenon [Recovering/Resolving]
  - Parkinson^s disease [Unknown]
  - General physical health deterioration [Unknown]
  - Dysphagia [Not Recovered/Not Resolved]
  - Choking [Recovered/Resolved]
  - Pneumonia aspiration [Fatal]
  - Increased bronchial secretion [Not Recovered/Not Resolved]

NARRATIVE: CASE EVENT DATE: 2018
